FAERS Safety Report 9314420 (Version 1)
Quarter: 2013Q2

REPORT INFORMATION
  Report Type: Spontaneous
  Country: US (occurrence: US)
  Receive Date: 20130529
  Receipt Date: 20130529
  Transmission Date: 20140414
  Serious: No
  Sender: FDA-Public Use
  Company Number: US-PFIZER INC-2013161094

PATIENT
  Age: 53 Year
  Sex: Female
  Weight: 54.88 kg

DRUGS (7)
  1. LORAZEPAM [Suspect]
     Indication: ANXIETY
     Dosage: 1 MG, DAILY
  2. LORAZEPAM [Suspect]
     Indication: SLEEP DISORDER
  3. LYRICA [Suspect]
     Indication: PAIN
     Dosage: 75 MG DAILY
     Dates: start: 20130522
  4. LYRICA [Suspect]
     Indication: FIBROMYALGIA
  5. CYMBALTA [Suspect]
     Indication: DEPRESSION
     Dosage: 60 MG, DAILY
     Dates: start: 201305
  6. CYMBALTA [Suspect]
     Indication: OBSESSIVE-COMPULSIVE DISORDER
  7. LAMISIL [Suspect]
     Indication: ONYCHOMYCOSIS
     Dosage: UNK

REACTIONS (6)
  - Dizziness [Recovering/Resolving]
  - Feeling abnormal [Recovering/Resolving]
  - Pain in extremity [Recovering/Resolving]
  - Pain [Recovering/Resolving]
  - Feeling abnormal [Recovering/Resolving]
  - Depression [Recovering/Resolving]
